FAERS Safety Report 9993307 (Version 1)
Quarter: 2014Q1

REPORT INFORMATION
  Report Type: Spontaneous
  Country: MA (occurrence: MA)
  Receive Date: 20140310
  Receipt Date: 20140310
  Transmission Date: 20141002
  Serious: Yes (Other)
  Sender: FDA-Public Use
  Company Number: MA-ABBVIE-14P-110-1210679-00

PATIENT
  Age: 45 Year
  Sex: Male

DRUGS (1)
  1. LIPANTHYL 160 MG [Suspect]
     Indication: BLOOD TRIGLYCERIDES INCREASED

REACTIONS (1)
  - Toxic skin eruption [Unknown]
